FAERS Safety Report 9282837 (Version 2)
Quarter: 2013Q2

REPORT INFORMATION
  Report Type: Spontaneous
  Country: JP (occurrence: JP)
  Receive Date: 20130510
  Receipt Date: 20130520
  Transmission Date: 20140414
  Serious: Yes (Death)
  Sender: FDA-Public Use
  Company Number: PHHY2013JP045969

PATIENT
  Sex: 0

DRUGS (5)
  1. EVEROLIMUS [Suspect]
     Indication: RENAL TRANSPLANT
     Dosage: UNK
     Route: 048
  2. CICLOSPORIN [Concomitant]
     Indication: IMMUNOSUPPRESSION
  3. RITUXIMAB [Concomitant]
  4. BASILIXIMAB [Concomitant]
  5. STEROIDS NOS [Concomitant]

REACTIONS (1)
  - Sudden death [Fatal]
